FAERS Safety Report 13906009 (Version 1)
Quarter: 2017Q3

REPORT INFORMATION
  Report Type: Spontaneous
  Country: US (occurrence: US)
  Receive Date: 20170825
  Receipt Date: 20170825
  Transmission Date: 20171127
  Serious: No
  Sender: FDA-Public Use
  Company Number: None

PATIENT

DRUGS (1)
  1. ACETAMINOPHEN 500 MG [Suspect]
     Active Substance: ACETAMINOPHEN

REACTIONS (2)
  - Product label confusion [None]
  - Physical product label issue [None]

NARRATIVE: CASE EVENT DATE: 20170823
